FAERS Safety Report 9867256 (Version 1)
Quarter: 2014Q1

REPORT INFORMATION
  Report Type: Report from Study
  Country: CO (occurrence: CO)
  Receive Date: 20140204
  Receipt Date: 20140204
  Transmission Date: 20141002
  Serious: Yes (Death)
  Sender: FDA-Public Use
  Company Number: CO-ABBVIE-14P-036-1197321-00

PATIENT
  Age: 62 Year
  Sex: Female
  Weight: 50 kg

DRUGS (1)
  1. ZEMPLAR [Suspect]
     Indication: HYPERPARATHYROIDISM SECONDARY
     Route: 048
     Dates: start: 20130115, end: 20131215

REACTIONS (8)
  - Abdominal distension [Fatal]
  - Fluid retention [Fatal]
  - Hepatic cirrhosis [Fatal]
  - Thrombocytopenia [Fatal]
  - Haemoglobin decreased [Fatal]
  - Blood pressure decreased [Fatal]
  - Nausea [Fatal]
  - Vomiting [Fatal]
